FAERS Safety Report 4582269-6 (Version None)
Quarter: 2005Q1

REPORT INFORMATION
  Report Type: 
  Country: None (occurrence: None)
  Receive Date: 20050127
  Receipt Date: 20040927
  Transmission Date: 20050727
  Serious: No
  Sender: FDA-Public Use
  Company Number: USA040979284

PATIENT
  Sex: Male

DRUGS (2)
  1. STRATTERA [Suspect]
     Dosage: 60 MG DAY
     Dates: start: 20040921
  2. PAXIL [Concomitant]

REACTIONS (3)
  - DYSURIA [None]
  - ERECTILE DYSFUNCTION [None]
  - URINARY HESITATION [None]
